FAERS Safety Report 8028096-9 (Version None)
Quarter: 2012Q1

REPORT INFORMATION
  Report Type: 
  Country: None (occurrence: None)
  Receive Date: 20120106
  Receipt Date: 20120103
  Transmission Date: 20120608
  Serious: Yes (Death)
  Sender: FDA-Public Use
  Company Number: CA-ROCHE-1027287

PATIENT
  Sex: Female
  Weight: 56.75 kg

DRUGS (5)
  1. NEXIUM [Concomitant]
  2. DILANTIN [Concomitant]
  3. DEXAMETHASONE [Concomitant]
  4. XELODA [Suspect]
     Indication: GASTROINTESTINAL CARCINOMA
     Route: 048
  5. LOVASTATIN [Concomitant]

REACTIONS (1)
  - DEATH [None]
